FAERS Safety Report 16560875 (Version 1)
Quarter: 2019Q3

REPORT INFORMATION
  Report Type: Spontaneous
  Country: FR (occurrence: FR)
  Receive Date: 20190711
  Receipt Date: 20190711
  Transmission Date: 20191004
  Serious: Yes (Other)
  Sender: FDA-Public Use
  Company Number: FR-MYLANLABS-2019M1063365

PATIENT
  Age: 40 Year
  Sex: Male

DRUGS (4)
  1. VALSARTAN ZENTIVA [Suspect]
     Active Substance: VALSARTAN
     Indication: HYPERTENSION
     Dosage: 160 MILLIGRAM, QD
     Route: 048
     Dates: start: 20140922, end: 20141222
  2. VALSARTAN AND HYDROCHLOROTHIAZIDE [Suspect]
     Active Substance: HYDROCHLOROTHIAZIDE\VALSARTAN
     Indication: HYPERTENSION
     Dosage: 1 DOSAGE FORM, QD
     Route: 048
     Dates: start: 20170113, end: 20170905
  3. VALSARTAN/HYDROCHLOROTHIAZIDE MYLAN 160 MG/25 MG, COMPRIM? PELLICUL? [Suspect]
     Active Substance: HYDROCHLOROTHIAZIDE\VALSARTAN
     Indication: HYPERTENSION
     Dosage: 1 DOSAGE FORM, QD
     Route: 048
     Dates: start: 20161014, end: 20180112
  4. VALSARTAN MYLAN 160 MG, COMPRIM? PELLICUL? S?CABLE [Suspect]
     Active Substance: VALSARTAN
     Indication: HYPERTENSION
     Dosage: 160 MILLIGRAM, QD
     Route: 048
     Dates: start: 20141222, end: 20180827

REACTIONS (1)
  - Transitional cell carcinoma [Recovering/Resolving]

NARRATIVE: CASE EVENT DATE: 20180525
